FAERS Safety Report 9748427 (Version 1)
Quarter: 2013Q4

REPORT INFORMATION
  Report Type: Spontaneous
  Country: US (occurrence: US)
  Receive Date: 20131212
  Receipt Date: 20131212
  Transmission Date: 20140711
  Serious: No
  Sender: FDA-Public Use
  Company Number: US-BAYER-2013-151664

PATIENT
  Age: 49 Year
  Sex: Female
  Weight: 136.5 kg

DRUGS (5)
  1. ALEVE CAPLET [Suspect]
     Indication: BACK PAIN
     Dosage: 2 DF, PRN
     Route: 048
     Dates: start: 2013
  2. FLEXERIL [Concomitant]
  3. EFFEXOR [Concomitant]
  4. TOPAMAX [Concomitant]
  5. SPIRONOLACTONE [Concomitant]

REACTIONS (1)
  - Drug ineffective [None]
